FAERS Safety Report 5988934-8 (Version None)
Quarter: 2008Q4

REPORT INFORMATION
  Report Type: 
  Country: None (occurrence: None)
  Receive Date: 20081210
  Receipt Date: 20080302
  Transmission Date: 20090506
  Serious: Yes (Other)
  Sender: FDA-Public Use
  Company Number: US-AMGEN-STX267871

PATIENT
  Sex: Female

DRUGS (2)
  1. ENBREL [Suspect]
     Indication: PSORIATIC ARTHROPATHY
     Route: 058
     Dates: start: 20080210
  2. METHOTREXATE [Concomitant]
     Route: 048
     Dates: start: 20070301

REACTIONS (3)
  - CONVULSION [None]
  - DIZZINESS [None]
  - HEADACHE [None]
